FAERS Safety Report 8546223-1 (Version None)
Quarter: 2012Q3

REPORT INFORMATION
  Report Type: 
  Country: None (occurrence: None)
  Receive Date: 20120727
  Receipt Date: 20120712
  Transmission Date: 20120928
  Serious: Yes (Other)
  Sender: FDA-Public Use
  Company Number: JP-WATSON-2012-12513

PATIENT
  Age: 78 Year
  Sex: Female

DRUGS (7)
  1. ISONIAZID [Suspect]
     Indication: MENINGITIS TUBERCULOUS
  2. RIFAMPICIN [Suspect]
     Dosage: 450 MG, UNKNOWN
     Route: 065
  3. BIOGENERICS PYRAZINAMIDE [Suspect]
     Indication: DISSEMINATED TUBERCULOSIS
     Dosage: 1000 MG, UNKNOWN
     Route: 065
  4. PREDNISOLONE [Suspect]
     Indication: DISSEMINATED TUBERCULOSIS
     Dosage: 40 MG, UNKNOWN
     Route: 065
  5. PREDNISOLONE [Suspect]
     Indication: MENINGITIS TUBERCULOUS
  6. ISONIAZID [Suspect]
     Indication: DISSEMINATED TUBERCULOSIS
     Dosage: 200 MG, UNKNOWN
     Route: 065
  7. ETHAMBUTOL HYDROCHLORIDE [Suspect]
     Indication: DISSEMINATED TUBERCULOSIS
     Dosage: 500 MG, UNKNOWN
     Route: 065

REACTIONS (3)
  - CEREBRAL INFARCTION [None]
  - DRUG INEFFECTIVE [None]
  - PARADOXICAL DRUG REACTION [None]
